FAERS Safety Report 5165410-6 (Version None)
Quarter: 2006Q4

REPORT INFORMATION
  Report Type: 
  Country: None (occurrence: None)
  Receive Date: 20061206
  Receipt Date: 20061124
  Transmission Date: 20070319
  Serious: Yes (Hospitalization, Other)
  Sender: FDA-Public Use
  Company Number: PHNU2006DE03947

PATIENT
  Sex: Female

DRUGS (1)
  1. METHERGINE [Suspect]
     Indication: VAGINAL HAEMORRHAGE
     Dosage: 125 UG, ONCE/SINGLE
     Route: 048
     Dates: start: 20061113, end: 20061113

REACTIONS (3)
  - HYPOAESTHESIA FACIAL [None]
  - MICROANGIOPATHY [None]
  - PARAESTHESIA [None]
